FAERS Safety Report 17028354 (Version 1)
Quarter: 2019Q4

REPORT INFORMATION
  Report Type: Report from Study
  Country: JP (occurrence: JP)
  Receive Date: 20191113
  Receipt Date: 20191113
  Transmission Date: 20200122
  Serious: Yes (Other)
  Sender: FDA-Public Use
  Company Number: JP-BEH-2018087462

PATIENT
  Age: 68 Year
  Sex: Female
  Weight: 56.8 kg

DRUGS (36)
  1. WARFARIN [Concomitant]
     Active Substance: WARFARIN
     Dosage: 3 MG, QD
     Route: 048
     Dates: start: 20171128
  2. KAYTWO [Concomitant]
     Active Substance: MENATETRENONE
     Dosage: UNK
     Route: 065
     Dates: start: 20171119, end: 20171119
  3. ISODINE SUGAR [Concomitant]
     Route: 065
  4. ASPIRIN. [Concomitant]
     Active Substance: ASPIRIN
     Dosage: UNK
     Route: 048
     Dates: end: 20171116
  5. MAGMITT [Concomitant]
     Active Substance: MAGNESIUM OXIDE
     Dosage: UNK
     Route: 048
     Dates: end: 20171116
  6. BERIPLEX P/N [Suspect]
     Active Substance: COAGULATION FACTOR IX HUMAN\COAGULATION FACTOR VII HUMAN\COAGULATION FACTOR X HUMAN\PROTEIN C\PROTEIN S HUMAN\PROTHROMBIN
     Indication: HAEMORRHAGE
     Dosage: 1000 IU, SINGLE
     Route: 065
     Dates: start: 20171116
  7. PROSTANDIN                         /00501501/ [Concomitant]
     Active Substance: ALPROSTADIL
     Dosage: UNK
     Route: 065
     Dates: start: 20171215
  8. MIYA-BM [Concomitant]
     Active Substance: CLOSTRIDIUM BUTYRICUM SPORES STRAIN M-55
     Indication: ENTEROCOLITIS
     Dosage: UNK
     Route: 048
     Dates: start: 20171118
  9. LANTUS [Concomitant]
     Active Substance: INSULIN GLARGINE
     Dosage: UNK
     Route: 065
     Dates: start: 20171126
  10. HEPARIN [Concomitant]
     Active Substance: HEPARIN SODIUM
     Indication: AORTIC VALVE REPLACEMENT
     Dosage: 10000 IU, UNK
     Route: 065
     Dates: start: 20171120, end: 20171207
  11. HERBESSER [Concomitant]
     Active Substance: DILTIAZEM HYDROCHLORIDE
     Route: 048
  12. METGLUCO [Concomitant]
     Active Substance: METFORMIN HYDROCHLORIDE
     Dosage: UNK
     Route: 048
     Dates: end: 20171116
  13. WARFARIN [Concomitant]
     Active Substance: WARFARIN
     Indication: AORTIC VALVE REPLACEMENT
     Dosage: 4 MG, QD
     Route: 048
     Dates: start: 20171128
  14. NIFLAN [Concomitant]
     Active Substance: PRANOPROFEN
     Route: 065
  15. MEROPENEM. [Concomitant]
     Active Substance: MEROPENEM
     Dosage: UNK
     Route: 065
     Dates: start: 20171121, end: 20171127
  16. ALPROSTADIL. [Concomitant]
     Active Substance: ALPROSTADIL
     Dosage: UNK
     Route: 065
     Dates: start: 20171205
  17. FUROSEMIDE. [Concomitant]
     Active Substance: FUROSEMIDE
     Dosage: UNK
     Route: 048
     Dates: end: 20171116
  18. ZYVOX [Concomitant]
     Active Substance: LINEZOLID
     Dosage: UNK
     Route: 048
     Dates: start: 20171117, end: 20171121
  19. ACMAIN [Concomitant]
     Indication: FLUID REPLACEMENT
     Dosage: UNK
     Route: 065
     Dates: start: 20171116, end: 20171117
  20. NICARDIPINE [Concomitant]
     Active Substance: NICARDIPINE
     Indication: HYPERTENSION
     Dosage: UNK
     Route: 065
     Dates: start: 20171116, end: 20171118
  21. OMEPRAZOLE. [Concomitant]
     Active Substance: OMEPRAZOLE
     Dosage: UNK
     Route: 065
     Dates: start: 20171116, end: 20171117
  22. CRESTOR [Concomitant]
     Active Substance: ROSUVASTATIN CALCIUM
     Dosage: UNK
     Route: 048
     Dates: end: 20171116
  23. TRAMADOL. [Concomitant]
     Active Substance: TRAMADOL
     Dosage: UNK
     Route: 048
     Dates: end: 20171116
  24. CEFTRIAXONE. [Concomitant]
     Active Substance: CEFTRIAXONE
     Dosage: UNK
     Route: 065
     Dates: start: 20171116, end: 20171120
  25. PROPOFOL. [Concomitant]
     Active Substance: PROPOFOL
     Indication: SEDATION
     Dosage: UNK
     Route: 065
     Dates: start: 20171116, end: 20171116
  26. BERIPLEX P/N [Suspect]
     Active Substance: COAGULATION FACTOR IX HUMAN\COAGULATION FACTOR VII HUMAN\COAGULATION FACTOR X HUMAN\PROTEIN C\PROTEIN S HUMAN\PROTHROMBIN
     Indication: HAEMORRHAGE
     Dosage: 1000 IU, SINGLE
     Route: 065
     Dates: start: 20171116
  27. KAYTWO [Concomitant]
     Active Substance: MENATETRENONE
     Indication: PROCOAGULANT THERAPY
     Dosage: UNK
     Route: 065
     Dates: start: 20171116, end: 20171116
  28. GEBEN [Concomitant]
     Active Substance: SILVER SULFADIAZINE
     Dosage: UNK
     Route: 065
     Dates: start: 20171117
  29. SOLDEM 1 [Concomitant]
     Active Substance: DEXTROSE\SODIUM CHLORIDE\SODIUM LACTATE
     Indication: FLUID REPLACEMENT
     Dosage: UNK
     Route: 065
     Dates: start: 20171203, end: 20171204
  30. NEXIUM [Concomitant]
     Active Substance: ESOMEPRAZOLE MAGNESIUM
     Dosage: UNK
     Route: 048
     Dates: start: 20171118
  31. GLIMEPIRIDE. [Concomitant]
     Active Substance: GLIMEPIRIDE
     Dosage: UNK
     Route: 048
     Dates: end: 20171211
  32. EQUA [Concomitant]
     Active Substance: VILDAGLIPTIN
     Route: 048
  33. CILOSTAZOL. [Concomitant]
     Active Substance: CILOSTAZOL
     Dosage: UNK
     Route: 048
     Dates: start: 20171205
  34. FIBLAST                            /00801901/ [Concomitant]
     Dosage: UNK
     Route: 065
     Dates: start: 20171215
  35. HUMULIN R [Concomitant]
     Active Substance: INSULIN HUMAN
     Dosage: UNK
     Route: 065
     Dates: start: 20171117
  36. FENTANYL. [Concomitant]
     Active Substance: FENTANYL
     Indication: ANALGESIC THERAPY
     Dosage: UNK
     Route: 065
     Dates: start: 20171118, end: 20171130

REACTIONS (2)
  - Dysuria [Not Recovered/Not Resolved]
  - Anaemia [Recovered/Resolved]

NARRATIVE: CASE EVENT DATE: 20171117
